FAERS Safety Report 24368757 (Version 1)
Quarter: 2024Q3

REPORT INFORMATION
  Report Type: Spontaneous
  Country: TR (occurrence: TR)
  Receive Date: 20240927
  Receipt Date: 20240927
  Transmission Date: 20241017
  Serious: Yes (Other)
  Sender: STRIDES
  Company Number: TR-STRIDES ARCOLAB LIMITED-2024SP012445

PATIENT
  Age: 79 Year
  Sex: Female

DRUGS (15)
  1. ETOPOSIDE [Suspect]
     Active Substance: ETOPOSIDE
     Indication: Angioimmunoblastic T-cell lymphoma
     Dosage: UNK, CYCLICAL (ICE REGIMEN)
     Route: 065
  2. DOXORUBICIN [Suspect]
     Active Substance: DOXORUBICIN
     Indication: Angioimmunoblastic T-cell lymphoma
     Dosage: UNK
     Route: 065
  3. PREDNISOLONE [Suspect]
     Active Substance: PREDNISOLONE
     Indication: Angioimmunoblastic T-cell lymphoma
     Dosage: UNK
     Route: 065
  4. IFOSFAMIDE [Suspect]
     Active Substance: IFOSFAMIDE
     Indication: Angioimmunoblastic T-cell lymphoma
     Dosage: UNK, CYCLICAL (ICE REGIMEN)
     Route: 065
  5. CARBOPLATIN [Suspect]
     Active Substance: CARBOPLATIN
     Indication: Angioimmunoblastic T-cell lymphoma
     Dosage: UNK, CYCLICAL (ICE REGIMEN)
     Route: 065
  6. BENDAMUSTINE [Suspect]
     Active Substance: BENDAMUSTINE
     Indication: Angioimmunoblastic T-cell lymphoma
     Dosage: 120 MILLIGRAM/SQ. METER, QD
     Route: 065
  7. GEMCITABINE [Suspect]
     Active Substance: GEMCITABINE
     Indication: Angioimmunoblastic T-cell lymphoma
     Dosage: UNK (GEMOX REGIMEN)
     Route: 065
  8. OXALIPLATIN [Suspect]
     Active Substance: OXALIPLATIN
     Indication: Angioimmunoblastic T-cell lymphoma
     Dosage: UNK (GEMOX REGIMEN)
     Route: 065
  9. CYCLOPHOSPHAMIDE [Suspect]
     Active Substance: CYCLOPHOSPHAMIDE
     Indication: Angioimmunoblastic T-cell lymphoma
     Dosage: UNK
     Route: 065
  10. VINCRISTINE [Suspect]
     Active Substance: VINCRISTINE
     Indication: Angioimmunoblastic T-cell lymphoma
     Dosage: UNK
     Route: 065
  11. FOLIC ACID [Suspect]
     Active Substance: FOLIC ACID
     Indication: Angioimmunoblastic T-cell lymphoma
     Dosage: UNK
     Route: 065
  12. PRALATREXATE [Suspect]
     Active Substance: PRALATREXATE
     Indication: Angioimmunoblastic T-cell lymphoma
     Dosage: UNK, ONCE A WEEK
     Route: 065
  13. BELINOSTAT [Suspect]
     Active Substance: BELINOSTAT
     Indication: Angioimmunoblastic T-cell lymphoma
     Dosage: 1000 MILLIGRAM/SQ. METER, QD (EVERY 21 DAYS FOR 5 DAYS)
     Route: 065
     Dates: start: 202102
  14. BORTEZOMIB [Suspect]
     Active Substance: BORTEZOMIB
     Indication: Angioimmunoblastic T-cell lymphoma
     Dosage: UNK
     Route: 065
     Dates: start: 202011
  15. ROMIDEPSIN [Suspect]
     Active Substance: ROMIDEPSIN
     Indication: Angioimmunoblastic T-cell lymphoma
     Dosage: UNK
     Route: 065
     Dates: start: 202011

REACTIONS (9)
  - Lymphoedema [Unknown]
  - Cellulite [Unknown]
  - Neuropathy peripheral [Unknown]
  - Nausea [Unknown]
  - Myelosuppression [Unknown]
  - Drug ineffective [Unknown]
  - Malignant neoplasm progression [Unknown]
  - Therapy partial responder [Unknown]
  - Off label use [Unknown]
